FAERS Safety Report 5567622-6 (Version None)
Quarter: 2007Q4

REPORT INFORMATION
  Report Type: 
  Country: None (occurrence: None)
  Receive Date: 20071219
  Receipt Date: 20071207
  Transmission Date: 20080405
  Serious: Yes (Life-Threatening, Hospitalization, Other)
  Sender: FDA-Public Use
  Company Number: JP-PFIZER INC-2007092853

PATIENT
  Sex: Male

DRUGS (6)
  1. GABAPEN [Suspect]
     Indication: EPILEPSY
     Route: 048
     Dates: start: 20070303, end: 20070505
  2. PHENOBAL [Suspect]
     Indication: EPILEPSY
     Route: 048
  3. MIKELAN [Concomitant]
     Route: 048
  4. GASTER [Concomitant]
     Route: 048
  5. TRIMEBUTINE MALEATE [Concomitant]
     Route: 048
  6. LACTOBACILLUS BIFIDUS, LYOPHILIZED [Concomitant]
     Route: 048

REACTIONS (4)
  - CONVULSION [None]
  - RESPIRATORY DEPRESSION [None]
  - SPUTUM RETENTION [None]
  - URINE OUTPUT DECREASED [None]
